FAERS Safety Report 19192357 (Version 2)
Quarter: 2022Q3

REPORT INFORMATION
  Report Type: Spontaneous
  Country: US (occurrence: US)
  Receive Date: 20210428
  Receipt Date: 20220911
  Transmission Date: 20221027
  Serious: No
  Sender: FDA-Public Use
  Company Number: US-SA-SAC20210427000348

PATIENT
  Sex: Female
  Weight: 55.7 kg

DRUGS (5)
  1. DUPIXENT [Suspect]
     Active Substance: DUPILUMAB
     Indication: Dermatitis atopic
     Dosage: 200 MG, QOW (1 SYRINGE (200MG) UNDER THE SKIN)
     Route: 058
     Dates: start: 2020
  2. ZYRTEC-D [Concomitant]
     Active Substance: CETIRIZINE HYDROCHLORIDE\PSEUDOEPHEDRINE HYDROCHLORIDE
     Dosage: 10MG
  3. LORATADINE [Concomitant]
     Active Substance: LORATADINE
     Dosage: 10MG
  4. VITAMINS NOS [Concomitant]
     Active Substance: VITAMINS
     Dosage: UNK
  5. ZYRTEC [Concomitant]
     Active Substance: CETIRIZINE HYDROCHLORIDE
     Dosage: UNK

REACTIONS (3)
  - Dermatitis atopic [Unknown]
  - Product dose omission issue [Unknown]
  - Rash [Not Recovered/Not Resolved]
